FAERS Safety Report 5419030-6 (Version None)
Quarter: 2007Q3

REPORT INFORMATION
  Report Type: 
  Country: None (occurrence: None)
  Receive Date: 20070820
  Receipt Date: 20070810
  Transmission Date: 20080115
  Serious: Yes (Other)
  Sender: FDA-Public Use
  Company Number: PHBS2007JP11012

PATIENT
  Age: 11 Year
  Sex: Male

DRUGS (3)
  1. SANDIMMUNE [Suspect]
     Indication: FOCAL GLOMERULOSCLEROSIS
     Dosage: 75 MG/DAY
     Route: 048
     Dates: start: 19990101
  2. NEORAL [Suspect]
     Indication: FOCAL GLOMERULOSCLEROSIS
     Route: 065
     Dates: start: 20030501, end: 20050801
  3. NEORAL [Suspect]
     Route: 065
     Dates: end: 20021001

REACTIONS (9)
  - BLOOD CREATININE INCREASED [None]
  - CYTOGENETIC ABNORMALITY [None]
  - DISEASE PROGRESSION [None]
  - FOCAL GLOMERULOSCLEROSIS [None]
  - NASOPHARYNGITIS [None]
  - NEPHROPATHY [None]
  - OEDEMA [None]
  - RENAL FAILURE CHRONIC [None]
  - TUBULOINTERSTITIAL NEPHRITIS [None]
